FAERS Safety Report 6447520-6 (Version None)
Quarter: 2009Q4

REPORT INFORMATION
  Report Type: 
  Country: None (occurrence: None)
  Receive Date: 20091119
  Receipt Date: 20081223
  Transmission Date: 20100525
  Serious: Yes (Death, Other)
  Sender: FDA-Public Use
  Company Number: FR-BAXTER-2008BH014276

PATIENT
  Age: 4 Year
  Sex: Female
  Weight: 15 kg

DRUGS (3)
  1. DEXTROSE 5% [Suspect]
     Indication: DRUG USE FOR UNKNOWN INDICATION
     Route: 041
  2. SUFENTANIL CITRATE [Concomitant]
     Indication: ANAESTHESIA
     Route: 065
  3. SEVOFLURANE [Concomitant]
     Indication: ANAESTHESIA
     Route: 065

REACTIONS (2)
  - HYPONATRAEMIA [None]
  - MEDICATION ERROR [None]
